FAERS Safety Report 9843460 (Version 1)
Quarter: 2013Q4

REPORT INFORMATION
  Report Type: Spontaneous
  Country: US (occurrence: None)
  Receive Date: 20131219
  Receipt Date: 20131219
  Transmission Date: 20140711
  Serious: Yes (Hospitalization)
  Sender: FDA-Public Use
  Company Number: 163-20785-13081914

PATIENT
  Age: 60 Year
  Sex: Male

DRUGS (4)
  1. THALOMID [Suspect]
     Indication: PLASMA CELL MYELOMA
     Dosage: 28 IN 28 D
     Route: 048
     Dates: start: 20100411
  2. DEXAMETHASONE [Concomitant]
  3. MULTIVITAMIN FOR HIM [Concomitant]
  4. PHOSLO [Concomitant]

REACTIONS (1)
  - Intestinal obstruction [None]
